FAERS Safety Report 4499272-7 (Version None)
Quarter: 2004Q4

REPORT INFORMATION
  Report Type: 
  Country: None (occurrence: None)
  Receive Date: 20041111
  Receipt Date: 20041102
  Transmission Date: 20050328
  Serious: Yes (Death)
  Sender: FDA-Public Use
  Company Number: US-JNJFOC-20040908654

PATIENT
  Age: 50 Year
  Sex: Female

DRUGS (7)
  1. ULTRACET [Suspect]
     Indication: DRUG USE FOR UNKNOWN INDICATION
     Dosage: 62 TABLETS
     Route: 049
  2. ACETAMINOPHEN AND HYDROCODONE BITARTRATE [Suspect]
     Route: 049
  3. ACETAMINOPHEN AND HYDROCODONE BITARTRATE [Suspect]
     Indication: DRUG USE FOR UNKNOWN INDICATION
     Route: 049
  4. HYDROCODONE/IBUPROFEN [Suspect]
     Route: 049
  5. HYDROCODONE/IBUPROFEN [Suspect]
     Indication: DRUG USE FOR UNKNOWN INDICATION
     Route: 049
  6. ATOMOXETINE [Suspect]
     Indication: DRUG USE FOR UNKNOWN INDICATION
  7. FERROUS SULFATE TAB [Suspect]
     Indication: DRUG USE FOR UNKNOWN INDICATION

REACTIONS (7)
  - CARDIAC ARREST [None]
  - COMA [None]
  - COMPLETED SUICIDE [None]
  - HEPATIC FAILURE [None]
  - HYPOTENSION [None]
  - MULTIPLE DRUG OVERDOSE INTENTIONAL [None]
  - RENAL FAILURE [None]
